FAERS Safety Report 17527393 (Version 3)
Quarter: 2020Q4

REPORT INFORMATION
  Report Type: Spontaneous
  Country: US (occurrence: US)
  Receive Date: 20200311
  Receipt Date: 20201007
  Transmission Date: 20210113
  Serious: Yes (Hospitalization, Disabling, Other)
  Sender: FDA-Public Use
  Company Number: US-JNJFOC-20200244542

PATIENT
  Age: 80 Year
  Sex: Female
  Weight: 70.7 kg

DRUGS (8)
  1. XARELTO [Suspect]
     Active Substance: RIVAROXABAN
     Indication: CEREBROVASCULAR ACCIDENT PROPHYLAXIS
  2. METOPROLOL TARTRATE. [Concomitant]
     Active Substance: METOPROLOL TARTRATE
     Indication: ATRIAL FIBRILLATION
     Route: 048
  3. XARELTO [Suspect]
     Active Substance: RIVAROXABAN
     Indication: ATRIAL FIBRILLATION
     Route: 048
     Dates: start: 20140608, end: 20141001
  4. DILTIAZEM. [Concomitant]
     Active Substance: DILTIAZEM
  5. LISINOPRIL. [Concomitant]
     Active Substance: LISINOPRIL
     Route: 048
  6. ATORVASTATIN [Concomitant]
     Active Substance: ATORVASTATIN
  7. DIGOXIN. [Concomitant]
     Active Substance: DIGOXIN
     Indication: HEART RATE ABNORMAL
  8. CENTRUM SILVER                     /02363801/ [Concomitant]
     Active Substance: MINERALS\VITAMINS
     Route: 048

REACTIONS (8)
  - Decreased appetite [Unknown]
  - Rib fracture [Unknown]
  - Syncope [Recovered/Resolved]
  - Atrial fibrillation [Unknown]
  - Ventricular tachycardia [Unknown]
  - Cerebrovascular accident [Not Recovered/Not Resolved]
  - Disability [Unknown]
  - Urinary tract infection [Unknown]

NARRATIVE: CASE EVENT DATE: 201407
